FAERS Safety Report 5875084-4 (Version None)
Quarter: 2008Q3

REPORT INFORMATION
  Report Type: 
  Country: None (occurrence: None)
  Receive Date: 20080904
  Receipt Date: 20080826
  Transmission Date: 20090109
  Serious: Yes (Hospitalization)
  Sender: FDA-Public Use
  Company Number: CIO08014751

PATIENT
  Age: 17 Year
  Sex: Male
  Weight: 65.8 kg

DRUGS (1)
  1. NYQUIL COUGH RELIEF, CHERRY FLAVOR (ETHANOL 10%, DEXTROMETHORPHAN HYDR [Suspect]
     Dosage: ORAL
     Route: 048
     Dates: start: 20080819, end: 20080819

REACTIONS (5)
  - CONDITION AGGRAVATED [None]
  - MALAISE [None]
  - PHARMACEUTICAL PRODUCT COMPLAINT [None]
  - PYREXIA [None]
  - VOMITING [None]
